FAERS Safety Report 6173893-8 (Version None)
Quarter: 2009Q2

REPORT INFORMATION
  Report Type: 
  Country: None (occurrence: None)
  Receive Date: 20090429
  Receipt Date: 20090429
  Transmission Date: 20091009
  Serious: Yes (Hospitalization)
  Sender: FDA-Public Use
  Company Number: None

PATIENT
  Age: 89 Year
  Sex: Male
  Weight: 74.6 kg

DRUGS (15)
  1. XELODA [Suspect]
     Indication: RECTAL CANCER
     Dosage: PO STOPPED 4/1/09
     Route: 048
     Dates: end: 20090401
  2. COUMADIN [Suspect]
     Indication: ATRIAL FIBRILLATION
     Dosage: 7MG DAILY PO CHRONIC
     Route: 048
  3. LASIX [Concomitant]
  4. NIFEDIPINE [Concomitant]
  5. M.V.I. [Concomitant]
  6. SYNTHROID [Concomitant]
  7. MUCINEX [Concomitant]
  8. MIRALAX [Concomitant]
  9. SPIRIVA [Concomitant]
  10. ALLOPURINOL [Concomitant]
  11. QUINAPRIL [Concomitant]
  12. FISH OIL [Concomitant]
  13. IRON [Concomitant]
  14. VIT D [Concomitant]
  15. ATROVENT [Concomitant]

REACTIONS (5)
  - COUGH [None]
  - DEHYDRATION [None]
  - DIARRHOEA [None]
  - HAEMATEMESIS [None]
  - INTERNATIONAL NORMALISED RATIO INCREASED [None]
